FAERS Safety Report 4500048-2 (Version None)
Quarter: 2004Q4

REPORT INFORMATION
  Report Type: 
  Country: None (occurrence: None)
  Receive Date: 20041109
  Receipt Date: 20041029
  Transmission Date: 20050328
  Serious: Yes (Hospitalization)
  Sender: FDA-Public Use
  Company Number: CHNY2004JP01755

PATIENT
  Age: 60 Year
  Sex: Female
  Weight: 45 kg

DRUGS (6)
  1. PURSENNID (NCH) (SEENA GLYCOSIDES (CA SALTS OF PURIFIED SENNA EXTRACT) [Suspect]
     Indication: CONSTIPATION
     Dosage: SEE IMAGE
     Route: 048
     Dates: start: 20020401, end: 20020601
  2. PURSENNID (NCH) (SEENA GLYCOSIDES (CA SALTS OF PURIFIED SENNA EXTRACT) [Suspect]
     Indication: CONSTIPATION
     Dosage: SEE IMAGE
     Route: 048
     Dates: start: 20020601, end: 20020911
  3. PURSENNID (NCH) (SEENA GLYCOSIDES (CA SALTS OF PURIFIED SENNA EXTRACT) [Suspect]
     Indication: CONSTIPATION
     Dosage: SEE IMAGE
     Route: 048
     Dates: start: 20020912, end: 20041003
  4. PURSENNID (NCH) (SEENA GLYCOSIDES (CA SALTS OF PURIFIED SENNA EXTRACT) [Suspect]
     Indication: CONSTIPATION
     Dosage: SEE IMAGE
     Route: 048
     Dates: start: 20041004
  5. LASIX [Suspect]
     Indication: OEDEMA
     Dosage: 20 MG, QD, ORAL
     Route: 048
     Dates: start: 20030128, end: 20030218
  6. ITRACONAZOLE [Concomitant]

REACTIONS (3)
  - DYSSTASIA [None]
  - HYPOKALAEMIA [None]
  - QUADRIPLEGIA [None]
